FAERS Safety Report 17386778 (Version 6)
Quarter: 2020Q1

REPORT INFORMATION
  Report Type: Spontaneous
  Country: ES (occurrence: ES)
  Receive Date: 20200206
  Receipt Date: 20200304
  Transmission Date: 20200409
  Serious: Yes (Death, Other)
  Sender: FDA-Public Use
  Company Number: ES-MYLANLABS-2020M1014220

PATIENT
  Age: 71 Year
  Sex: Male

DRUGS (17)
  1. MEROPENEM. [Suspect]
     Active Substance: MEROPENEM
     Indication: HAEMATOMA INFECTION
     Dosage: UNK
     Route: 065
     Dates: start: 20170511, end: 201706
  2. ANIDULAFUNGIN [Suspect]
     Active Substance: ANIDULAFUNGIN
     Dosage: UNK
     Route: 065
     Dates: start: 2017
  3. FLUCONAZOLE. [Suspect]
     Active Substance: FLUCONAZOLE
     Indication: ABDOMINAL INFECTION
     Dosage: UNK
     Route: 065
     Dates: start: 2017, end: 2017
  4. FLUCONAZOLE. [Suspect]
     Active Substance: FLUCONAZOLE
     Dosage: UNK
     Route: 065
     Dates: start: 2017
  5. VANCOMYCIN [Suspect]
     Active Substance: VANCOMYCIN
     Indication: ABDOMINAL INFECTION
     Dosage: UNK
     Route: 065
     Dates: start: 2017, end: 2017
  6. MEROPENEM. [Suspect]
     Active Substance: MEROPENEM
     Indication: EVIDENCE BASED TREATMENT
     Dosage: UNK
     Route: 065
     Dates: start: 20170511
  7. CASPOFUNGIN [Suspect]
     Active Substance: CASPOFUNGIN
     Dosage: UNK
     Route: 065
     Dates: start: 2017
  8. CASPOFUNGIN [Suspect]
     Active Substance: CASPOFUNGIN
     Indication: CANDIDA INFECTION
     Dosage: UNK
     Route: 065
     Dates: start: 2017, end: 2017
  9. LINEZOLID. [Suspect]
     Active Substance: LINEZOLID
     Indication: EVIDENCE BASED TREATMENT
     Dosage: UNK
     Dates: start: 2017, end: 2017
  10. DAPTOMYCIN. [Suspect]
     Active Substance: DAPTOMYCIN
     Indication: HAEMATOMA INFECTION
     Dosage: UNK
     Route: 065
     Dates: start: 20170625, end: 2017
  11. CEFTOLOZANE SULFATE W/TAZOBACTAM SODIUM [Suspect]
     Active Substance: CEFTOLOZANE SULFATE\TAZOBACTAM SODIUM
     Dosage: UNK
     Route: 065
     Dates: start: 2017
  12. DAPTOMYCIN. [Suspect]
     Active Substance: DAPTOMYCIN
     Indication: EVIDENCE BASED TREATMENT
     Dosage: UNK
     Route: 065
     Dates: start: 20170511, end: 201706
  13. DAPTOMYCIN. [Suspect]
     Active Substance: DAPTOMYCIN
     Dosage: UNK
     Route: 065
     Dates: start: 20170625
  14. ANIDULAFUNGIN [Suspect]
     Active Substance: ANIDULAFUNGIN
     Indication: ABDOMINAL INFECTION
     Dosage: UNK
     Route: 065
     Dates: start: 2017, end: 2017
  15. LINEZOLID. [Suspect]
     Active Substance: LINEZOLID
     Dosage: UNK
     Route: 065
     Dates: start: 2017
  16. VANCOMYCIN [Suspect]
     Active Substance: VANCOMYCIN
     Dosage: UNK
     Route: 065
     Dates: start: 2017
  17. CEFTOLOZANE SULFATE W/TAZOBACTAM SODIUM [Suspect]
     Active Substance: CEFTOLOZANE SULFATE\TAZOBACTAM SODIUM
     Indication: EVIDENCE BASED TREATMENT
     Dosage: UNK
     Route: 065
     Dates: start: 2017, end: 2017

REACTIONS (14)
  - Pneumonia [Fatal]
  - Haemodynamic instability [Fatal]
  - Upper gastrointestinal haemorrhage [Fatal]
  - Rectal perforation [Fatal]
  - Multiple organ dysfunction syndrome [Fatal]
  - Intestinal ischaemia [Fatal]
  - Death [Fatal]
  - Spinal cord disorder [Fatal]
  - Systemic inflammatory response syndrome [Fatal]
  - Aortoenteric fistula [Fatal]
  - Perforation [Fatal]
  - Respiratory tract infection [Fatal]
  - Sepsis [Fatal]
  - Hypoperfusion [Fatal]

NARRATIVE: CASE EVENT DATE: 2017
